FAERS Safety Report 18603451 (Version 3)
Quarter: 2021Q1

REPORT INFORMATION
  Report Type: Spontaneous
  Country: BE (occurrence: BE)
  Receive Date: 20201210
  Receipt Date: 20210319
  Transmission Date: 20210419
  Serious: Yes (Other)
  Sender: FDA-Public Use
  Company Number: BE-BEH-2017081117

PATIENT
  Age: 30 Year
  Sex: Male

DRUGS (2)
  1. SANDOGLOBULINE [Suspect]
     Active Substance: HUMAN IMMUNOGLOBULIN G
     Indication: PRODUCT USED FOR UNKNOWN INDICATION
     Dosage: 7 X 6 G
     Route: 042
     Dates: start: 20170603, end: 20170603
  2. PRIVIGEN [Suspect]
     Active Substance: HUMAN IMMUNOGLOBULIN G
     Indication: IMMUNOGLOBULIN THERAPY
     Route: 065

REACTIONS (9)
  - Injection site swelling [Unknown]
  - Musculoskeletal stiffness [Not Recovered/Not Resolved]
  - Meningitis [Not Recovered/Not Resolved]
  - Injection site pain [Recovering/Resolving]
  - Drug intolerance [Not Recovered/Not Resolved]
  - Injection site extravasation [Unknown]
  - Administration site pain [Unknown]
  - Injection site warmth [Unknown]
  - Injection site erythema [Unknown]

NARRATIVE: CASE EVENT DATE: 20170603
